FAERS Safety Report 9255766 (Version 1)
Quarter: 2013Q2

REPORT INFORMATION
  Report Type: Spontaneous
  Country: JP (occurrence: None)
  Receive Date: 20130418
  Receipt Date: 20130418
  Transmission Date: 20140414
  Serious: No
  Sender: FDA-Public Use
  Company Number: SP1201300230

PATIENT
  Sex: 0

DRUGS (1)
  1. AMITIZA (LUBIPROSTONE) CAPSULE, 24MCG [Suspect]
     Route: 048

REACTIONS (1)
  - Dyspnoea [None]
